FAERS Safety Report 16815357 (Version 1)
Quarter: 2019Q3

REPORT INFORMATION
  Report Type: Spontaneous
  Country: US (occurrence: US)
  Receive Date: 20190917
  Receipt Date: 20190917
  Transmission Date: 20191005
  Serious: No
  Sender: FDA-Public Use
  Company Number: US-ALLERGAN-1837948US

PATIENT
  Sex: Female
  Weight: 65.31 kg

DRUGS (3)
  1. LINZESS [Suspect]
     Active Substance: LINACLOTIDE
     Indication: CONSTIPATION
     Dosage: 290 ?G, QD
     Route: 048
  2. PREDNISONE. [Concomitant]
     Active Substance: PREDNISONE
     Indication: TEMPORAL ARTERITIS
  3. DULCOLAX NOS [Concomitant]
     Active Substance: BISACODYL OR DOCUSATE SODIUM
     Indication: INFREQUENT BOWEL MOVEMENTS

REACTIONS (6)
  - Abdominal pain [Unknown]
  - Constipation [Unknown]
  - Abdominal pain upper [Unknown]
  - Change of bowel habit [Unknown]
  - Abdominal distension [Unknown]
  - Nausea [Unknown]
